FAERS Safety Report 20005250 (Version 2)
Quarter: 2021Q4

REPORT INFORMATION
  Report Type: Report from Study
  Country: DE (occurrence: DE)
  Receive Date: 20211028
  Receipt Date: 20211209
  Transmission Date: 20220303
  Serious: Yes (Other)
  Sender: FDA-Public Use
  Company Number: DE-SUN PHARMACEUTICAL INDUSTRIES LTD-2021RR-315729

PATIENT
  Age: 67 Year
  Sex: Male
  Weight: 93 kg

DRUGS (6)
  1. SONIDEGIB [Suspect]
     Active Substance: SONIDEGIB
     Indication: Basal cell carcinoma
     Dosage: 200 MILLIGRAM, DAILY
     Route: 048
     Dates: start: 20210315, end: 20210901
  2. METFORMIN [Concomitant]
     Active Substance: METFORMIN HYDROCHLORIDE
     Indication: Pre-existing disease
     Dosage: 850 MILLIGRAM, DAILY
     Route: 048
  3. ASPIRIN [Concomitant]
     Active Substance: ASPIRIN
     Indication: Pre-existing disease
     Dosage: 100 MILLIGRAM, DAILY
     Route: 048
     Dates: start: 20210223
  4. RAMIPRIL [Concomitant]
     Active Substance: RAMIPRIL
     Indication: Pre-existing disease
     Dosage: 2.5 MILLIGRAM, DAILY
     Route: 048
     Dates: start: 20210223
  5. Brimicar Genuair [Concomitant]
     Indication: Prophylaxis
     Dosage: 340 MICROGRAM, BID
     Route: 048
     Dates: start: 20211026
  6. Apsomol N/ Aerosol [Concomitant]
     Indication: Prophylaxis
     Dosage: DOSE AS REQUIRED
     Route: 048
     Dates: start: 20211026

REACTIONS (1)
  - Hyperthyroidism [Recovered/Resolved]

NARRATIVE: CASE EVENT DATE: 20210901
